FAERS Safety Report 6285019-0 (Version None)
Quarter: 2009Q3

REPORT INFORMATION
  Report Type: 
  Country: None (occurrence: None)
  Receive Date: 20090727
  Receipt Date: 20090610
  Transmission Date: 20100115
  Serious: No
  Sender: FDA-Public Use
  Company Number: US-ABBOTT-09P-163-0579180-00

PATIENT
  Age: 47 Year
  Sex: Male

DRUGS (12)
  1. NORVIR [Suspect]
     Indication: HIV INFECTION
     Dates: start: 20071101
  2. NORVIR [Suspect]
     Dates: start: 20080301
  3. PREZISTA [Suspect]
     Indication: HIV INFECTION
     Route: 048
     Dates: start: 20071101, end: 20080301
  4. PREZISTA [Suspect]
     Route: 048
     Dates: start: 20080301
  5. ETRAVIRINE [Suspect]
     Indication: HIV INFECTION
     Route: 048
     Dates: start: 20071101
  6. ETRAVIRINE [Suspect]
     Route: 048
     Dates: start: 20080301
  7. TRIZIVIR [Suspect]
     Indication: HIV INFECTION
     Dates: start: 20071101
  8. VIREAD [Suspect]
     Indication: HIV INFECTION
     Dates: start: 20071101
  9. VIREAD [Suspect]
     Dates: start: 20080301
  10. RALTEGRAVIR [Suspect]
     Indication: HIV INFECTION
     Dates: start: 20071101
  11. RALTEGRAVIR [Suspect]
     Dates: start: 20080301
  12. ANTIDEPRESSANTS [Concomitant]
     Indication: DRUG USE FOR UNKNOWN INDICATION

REACTIONS (1)
  - ADVERSE DRUG REACTION [None]
